FAERS Safety Report 18651502 (Version 1)
Quarter: 2020Q4

REPORT INFORMATION
  Report Type: Spontaneous
  Country: IT (occurrence: IT)
  Receive Date: 20201223
  Receipt Date: 20201223
  Transmission Date: 20210114
  Serious: Yes (Other)
  Sender: FDA-Public Use
  Company Number: IT-AUROBINDO-AUR-APL-2020-061978

PATIENT
  Age: 42 Year
  Sex: Male

DRUGS (1)
  1. METRONIDAZOLE. [Suspect]
     Active Substance: METRONIDAZOLE
     Indication: DYSBIOSIS
     Dosage: UNK
     Route: 048

REACTIONS (3)
  - Rash erythematous [Recovered/Resolved]
  - Angioedema [Recovered/Resolved]
  - Type IV hypersensitivity reaction [Recovered/Resolved]
